FAERS Safety Report 18595973 (Version 1)
Quarter: 2020Q4

REPORT INFORMATION
  Report Type: Spontaneous
  Country: US (occurrence: US)
  Receive Date: 20201209
  Receipt Date: 20201209
  Transmission Date: 20210114
  Serious: No
  Sender: FDA-Public Use
  Company Number: US-SUPERNUS PHARMACEUTICALS, INC.-2020SUP00239

PATIENT
  Sex: Female

DRUGS (2)
  1. TROKENDI XR [Suspect]
     Active Substance: TOPIRAMATE
     Indication: MIGRAINE
     Dosage: UNK
     Dates: start: 2019
  2. TROKENDI XR [Suspect]
     Active Substance: TOPIRAMATE
     Indication: HEADACHE

REACTIONS (7)
  - Dysphemia [Unknown]
  - Fatigue [Not Recovered/Not Resolved]
  - Aphasia [Unknown]
  - Paraesthesia [Not Recovered/Not Resolved]
  - Taste disorder [Not Recovered/Not Resolved]
  - Disorganised speech [Unknown]
  - Therapeutic product effect incomplete [Not Recovered/Not Resolved]
